FAERS Safety Report 16159810 (Version 1)
Quarter: 2019Q2

REPORT INFORMATION
  Report Type: Spontaneous
  Country: JP (occurrence: JP)
  Receive Date: 20190404
  Receipt Date: 20190404
  Transmission Date: 20190711
  Serious: Yes (Hospitalization)
  Sender: FDA-Public Use
  Company Number: JP-PFIZER INC-2019147997

PATIENT
  Age: 9 Decade
  Sex: Male

DRUGS (3)
  1. CELECOX [Suspect]
     Active Substance: CELECOXIB
     Indication: RIB FRACTURE
     Dosage: 400 MG/DAY
     Route: 048
     Dates: end: 20190225
  2. LOXONIN [Suspect]
     Active Substance: LOXOPROFEN SODIUM
     Dosage: 180 MG/DAY
     Route: 048
     Dates: start: 20190225
  3. PREDONINE [Concomitant]
     Active Substance: PREDNISOLONE
     Dosage: UNK
     Route: 065

REACTIONS (1)
  - Renal disorder [Unknown]
